FAERS Safety Report 4896907-1 (Version None)
Quarter: 2006Q1

REPORT INFORMATION
  Report Type: 
  Country: None (occurrence: None)
  Receive Date: 20060127
  Receipt Date: 20060112
  Transmission Date: 20060701
  Serious: Yes (Other)
  Sender: FDA-Public Use
  Company Number: NL200601002495

PATIENT
  Sex: Male

DRUGS (1)
  1. STRATTERA (ATOMOXETINE HYDROCHLORIDE UNKNOWN FORMULATION) [Suspect]
     Indication: ATTENTION DEFICIT/HYPERACTIVITY DISORDER
     Dosage: 36 MG, ORAL
     Route: 048
     Dates: start: 20051001

REACTIONS (1)
  - HEPATIC NEOPLASM MALIGNANT [None]
